FAERS Safety Report 4618754-8 (Version None)
Quarter: 2005Q1

REPORT INFORMATION
  Report Type: 
  Country: None (occurrence: None)
  Receive Date: 20050323
  Receipt Date: 20050222
  Transmission Date: 20050727
  Serious: Yes (Hospitalization)
  Sender: FDA-Public Use
  Company Number: 2005028708

PATIENT
  Age: 81 Year
  Sex: Female
  Weight: 72.5755 kg

DRUGS (4)
  1. DETROL LA [Suspect]
     Indication: URINARY INCONTINENCE
     Dosage: SEE IMAGE
     Route: 048
  2. TOCOPHEROL (TOCOPHEROL) [Concomitant]
  3. RETINOL (RETINOL) [Concomitant]
  4. ASCORBIC ACID [Concomitant]

REACTIONS (3)
  - CARDIAC DISORDER [None]
  - DRUG INEFFECTIVE [None]
  - KNEE ARTHROPLASTY [None]
